FAERS Safety Report 6961755-5 (Version None)
Quarter: 2010Q3

REPORT INFORMATION
  Report Type: 
  Country: None (occurrence: None)
  Receive Date: 20100901
  Receipt Date: 20100826
  Transmission Date: 20110219
  Serious: Yes (Other)
  Sender: FDA-Public Use
  Company Number: DE-ALLERGAN-1011109US

PATIENT
  Sex: Female

DRUGS (1)
  1. LUMIGAN SOLUTION 0.01% [Suspect]
     Indication: GLAUCOMA

REACTIONS (3)
  - ARRHYTHMIA [None]
  - NAUSEA [None]
  - VERTIGO [None]
